FAERS Safety Report 9859042 (Version 1)
Quarter: 2014Q1

REPORT INFORMATION
  Report Type: Spontaneous
  Country: FI (occurrence: FI)
  Receive Date: 20140131
  Receipt Date: 20140131
  Transmission Date: 20141002
  Serious: Yes (Hospitalization)
  Sender: FDA-Public Use
  Company Number: FI-TEVA-458117ISR

PATIENT
  Age: 73 Year
  Sex: Male

DRUGS (16)
  1. LOSATRIX 50 MG [Suspect]
     Dosage: 50 MILLIGRAM DAILY;
     Route: 048
     Dates: start: 20091208, end: 20131229
  2. AMLODIPIN ACTAVIS [Suspect]
     Dosage: 10 MILLIGRAM DAILY;
     Route: 048
     Dates: start: 20131011, end: 20131228
  3. EMCONCONR CHF [Concomitant]
     Dosage: 2.5 MILLIGRAM DAILY;
     Route: 048
     Dates: start: 20130114
  4. PRIMASPAN [Concomitant]
     Dosage: 100 MILLIGRAM DAILY;
     Route: 048
     Dates: start: 20131011
  5. SERETIDE DISKUS [Concomitant]
     Dosage: 2 DOSAGE FORMS DAILY;
     Route: 055
     Dates: start: 20100614
  6. DIFORMIN RETARD [Concomitant]
     Dosage: 1000 MILLIGRAM DAILY;
     Route: 048
     Dates: start: 20130302
  7. CRESTOR [Concomitant]
     Dosage: 20 MILLIGRAM DAILY;
     Route: 048
     Dates: start: 20130114
  8. FLIXONASE [Concomitant]
     Dosage: 100 MICROGRAM DAILY;
     Route: 045
     Dates: start: 20100726
  9. DINIT [Concomitant]
     Route: 048
     Dates: start: 20131011
  10. NITRO [Concomitant]
     Route: 060
     Dates: start: 20100304
  11. VENTOLINE DISKUS [Concomitant]
     Route: 055
     Dates: start: 20100726
  12. TENOX [Concomitant]
     Route: 048
     Dates: start: 20130714
  13. BURANA [Concomitant]
     Route: 048
     Dates: start: 20130612
  14. PANADOL FORTE [Concomitant]
     Route: 048
     Dates: start: 20110608
  15. VOLTAREN [Concomitant]
     Route: 061
     Dates: start: 20110608
  16. MONTELUKAST ACTAVIS [Concomitant]
     Dosage: 10 MILLIGRAM DAILY;
     Route: 048
     Dates: start: 20100922, end: 20131228

REACTIONS (7)
  - Anaphylactoid reaction [Recovered/Resolved]
  - Angioedema [Recovered/Resolved]
  - Erythema [Recovered/Resolved]
  - Urticaria [Recovered/Resolved]
  - Nasopharyngitis [Not Recovered/Not Resolved]
  - Dyspnoea [Recovered/Resolved]
  - Pyrexia [Recovered/Resolved]
